FAERS Safety Report 7918838-2 (Version None)
Quarter: 2011Q4

REPORT INFORMATION
  Report Type: 
  Country: None (occurrence: None)
  Receive Date: 20111116
  Receipt Date: 20111107
  Transmission Date: 20120403
  Serious: Yes (Hospitalization, Other)
  Sender: FDA-Public Use
  Company Number: PHHY2011CH098387

PATIENT
  Age: 64 Year
  Sex: Male

DRUGS (1)
  1. LEUPROLIDE ACETATE [Suspect]
     Indication: ADENOCARCINOMA

REACTIONS (11)
  - OEDEMA PERIPHERAL [None]
  - DYSPNOEA [None]
  - OLIGURIA [None]
  - HYPERTENSION [None]
  - MYOPATHY [None]
  - PNEUMONIA ASPIRATION [None]
  - MYALGIA [None]
  - RHABDOMYOLYSIS [None]
  - MUSCLE NECROSIS [None]
  - DYSARTHRIA [None]
  - MUSCULAR WEAKNESS [None]
